FAERS Safety Report 24694856 (Version 1)
Quarter: 2024Q4

REPORT INFORMATION
  Report Type: Report from Study
  Country: AR (occurrence: AR)
  Receive Date: 20241204
  Receipt Date: 20241204
  Transmission Date: 20250115
  Serious: Yes (Hospitalization, Other)
  Sender: JOHNSON AND JOHNSON
  Company Number: AR-JNJFOC-20241200922

PATIENT
  Age: 8 Decade
  Sex: Female
  Weight: 80 kg

DRUGS (1)
  1. SIMPONI [Suspect]
     Active Substance: GOLIMUMAB
     Indication: Rheumatoid arthritis
     Route: 041
     Dates: start: 20180927

REACTIONS (2)
  - Breast cancer [Unknown]
  - Umbilical hernia [Unknown]

NARRATIVE: CASE EVENT DATE: 20220101
